FAERS Safety Report 24753365 (Version 1)
Quarter: 2024Q4

REPORT INFORMATION
  Report Type: Spontaneous
  Country: US (occurrence: None)
  Receive Date: 20241218
  Receipt Date: 20241218
  Transmission Date: 20250115
  Serious: Yes (Other)
  Sender: Public
  Company Number: None

PATIENT
  Age: 48 Year
  Sex: Male
  Weight: 115.5 kg

DRUGS (2)
  1. AVSOLA [Suspect]
     Active Substance: INFLIXIMAB-AXXQ
     Indication: Crohn^s disease
     Dosage: 580 MG EVERY 8 WEEKS INTRAVENOUS?
     Route: 042
     Dates: start: 20231228, end: 20241125
  2. HUMIRA [Suspect]
     Active Substance: ADALIMUMAB

REACTIONS (8)
  - Drug ineffective [None]
  - Dyspnoea [None]
  - Urticaria [None]
  - Lip swelling [None]
  - Nausea [None]
  - Lip erythema [None]
  - Drug hypersensitivity [None]
  - Immune-mediated adverse reaction [None]

NARRATIVE: CASE EVENT DATE: 20241123
